FAERS Safety Report 6304693-3 (Version None)
Quarter: 2009Q3

REPORT INFORMATION
  Report Type: 
  Country: None (occurrence: None)
  Receive Date: 20090811
  Receipt Date: 20090804
  Transmission Date: 20100115
  Serious: Yes (Hospitalization)
  Sender: FDA-Public Use
  Company Number: A0745311A

PATIENT
  Age: 72 Year
  Sex: Female
  Weight: 86.4 kg

DRUGS (10)
  1. AVANDIA [Suspect]
     Dosage: 4MG PER DAY
     Route: 048
  2. GLUCOPHAGE [Concomitant]
  3. VIOXX [Concomitant]
  4. UROCIT-K [Concomitant]
  5. HYDROCHLOROTHIAZIDE [Concomitant]
  6. LIPITOR [Concomitant]
  7. TRICOR [Concomitant]
  8. ALLEGRA [Concomitant]
  9. NORCO [Concomitant]
  10. ASPIRIN [Concomitant]

REACTIONS (2)
  - CEREBROVASCULAR ACCIDENT [None]
  - HIP FRACTURE [None]
